FAERS Safety Report 9044809 (Version 1)
Quarter: 2013Q1

REPORT INFORMATION
  Report Type: Report from Study
  Country: US (occurrence: US)
  Receive Date: 20130130
  Receipt Date: 20130130
  Transmission Date: 20140127
  Serious: No
  Sender: FDA-Public Use
  Company Number: US-ABBOTT-12P-163-0938210-00

PATIENT
  Age: 53 Year
  Sex: Male

DRUGS (2)
  1. HUMIRA 40 MG/0.8 ML PEN [Suspect]
     Indication: PSORIASIS
     Dates: start: 20120430
  2. ATENOLOL [Concomitant]
     Indication: HYPERTENSION
     Dosage: 1 TAB EVERY DAY

REACTIONS (2)
  - Drug dose omission [Unknown]
  - Arthralgia [Not Recovered/Not Resolved]
